FAERS Safety Report 18990108 (Version 2)
Quarter: 2022Q3

REPORT INFORMATION
  Report Type: Report from Study
  Country: CO (occurrence: CO)
  Receive Date: 20210310
  Receipt Date: 20220916
  Transmission Date: 20221027
  Serious: Yes (Hospitalization, Other)
  Sender: FDA-Public Use
  Company Number: CO-SA-SAC20210308001415

PATIENT
  Age: 26 Year
  Sex: Female

DRUGS (2)
  1. IMIGLUCERASE [Suspect]
     Active Substance: IMIGLUCERASE
     Indication: Gaucher^s disease type III
     Dosage: 3600 IU (9 VIALS), QOW
     Route: 041
     Dates: start: 19980930
  2. IMIGLUCERASE [Suspect]
     Active Substance: IMIGLUCERASE
     Dosage: 3600 IU (9 VIALS), QOW
     Route: 041
     Dates: start: 20130805, end: 20220908

REACTIONS (3)
  - Post procedural infection [Recovering/Resolving]
  - Femur fracture [Unknown]
  - Limb operation [Unknown]

NARRATIVE: CASE EVENT DATE: 20210225
